FAERS Safety Report 9577099 (Version 1)
Quarter: 2013Q4

REPORT INFORMATION
  Report Type: Spontaneous
  Country: US (occurrence: US)
  Receive Date: 20131001
  Receipt Date: 20131001
  Transmission Date: 20140711
  Serious: No
  Sender: FDA-Public Use
  Company Number: US-AMGEN-USASP2013006436

PATIENT
  Sex: Male
  Weight: 133.79 kg

DRUGS (4)
  1. ENBREL [Suspect]
     Indication: PSORIATIC ARTHROPATHY
     Dosage: 50 MG, 2 TIMES/WK
     Route: 058
  2. VITAMIN D                          /00107901/ [Concomitant]
     Dosage: 400 UNIT, UNK
  3. FISH OIL [Concomitant]
     Dosage: UNK
  4. GLUCOSAMINE /CHOND                 /01639101/ [Concomitant]
     Dosage: 500-400

REACTIONS (3)
  - Pain [Unknown]
  - Arthralgia [Unknown]
  - Musculoskeletal pain [Unknown]
